FAERS Safety Report 7291574-4 (Version None)
Quarter: 2011Q1

REPORT INFORMATION
  Report Type: 
  Country: None (occurrence: None)
  Receive Date: 20110214
  Receipt Date: 20110204
  Transmission Date: 20110831
  Serious: Yes (Hospitalization)
  Sender: FDA-Public Use
  Company Number: PHHO2010US14448

PATIENT
  Sex: Male

DRUGS (2)
  1. AFINITOR [Suspect]
     Indication: TUBEROUS SCLEROSIS
     Dosage: UNK
     Route: 048
     Dates: start: 20080108, end: 20100915
  2. AFINITOR [Suspect]
     Dosage: UNK
     Route: 048
     Dates: start: 20100922

REACTIONS (6)
  - LEUKOCYTOSIS [None]
  - PYREXIA [None]
  - PETECHIAE [None]
  - SINUSITIS [None]
  - VIRAL INFECTION [None]
  - POST LUMBAR PUNCTURE SYNDROME [None]
